FAERS Safety Report 15999109 (Version 1)
Quarter: 2019Q1

REPORT INFORMATION
  Report Type: Spontaneous
  Country: US (occurrence: US)
  Receive Date: 20190225
  Receipt Date: 20190225
  Transmission Date: 20190418
  Serious: No
  Sender: FDA-Public Use
  Company Number: US-ORPHAN EUROPE-2063137

PATIENT
  Age: 37 Year
  Sex: Female

DRUGS (2)
  1. CYSTADANE [Suspect]
     Active Substance: BETAINE
     Indication: HOMOCYSTINURIA
     Route: 048
  2. CYSTADANE [Suspect]
     Active Substance: BETAINE
     Route: 048

REACTIONS (7)
  - Nasopharyngitis [Unknown]
  - Product dose omission [Not Recovered/Not Resolved]
  - Product packaging issue [Unknown]
  - Influenza [Unknown]
  - Vomiting [Unknown]
  - Product administration error [Unknown]
  - Retching [Unknown]
